FAERS Safety Report 25819770 (Version 2)
Quarter: 2025Q3

REPORT INFORMATION
  Report Type: Spontaneous
  Country: JP (occurrence: JP)
  Receive Date: 20250918
  Receipt Date: 20250924
  Transmission Date: 20251021
  Serious: Yes (Hospitalization)
  Sender: NOVO NORDISK
  Company Number: JP-NOVOPROD-1520601

PATIENT
  Age: 5 Decade
  Sex: Male

DRUGS (4)
  1. RYBELSUS [Suspect]
     Active Substance: SEMAGLUTIDE
     Indication: Type 2 diabetes mellitus
     Dosage: 14 MG, QD
     Route: 048
     Dates: end: 20250904
  2. DAPAGLIFLOZIN [Concomitant]
     Active Substance: DAPAGLIFLOZIN
     Indication: Type 2 diabetes mellitus
     Route: 048
     Dates: end: 20250904
  3. METFORMIN HYDROCHLORIDE [Concomitant]
     Active Substance: METFORMIN HYDROCHLORIDE
     Indication: Type 2 diabetes mellitus
     Route: 048
     Dates: end: 20250904
  4. GLICLAZIDE [Concomitant]
     Active Substance: GLICLAZIDE
     Indication: Type 2 diabetes mellitus
     Route: 048
     Dates: end: 20250904

REACTIONS (1)
  - Gastroenteritis [Recovered/Resolved]

NARRATIVE: CASE EVENT DATE: 20250904
